FAERS Safety Report 15593440 (Version 2)
Quarter: 2018Q4

REPORT INFORMATION
  Report Type: Report from Study
  Country: US (occurrence: US)
  Receive Date: 20181106
  Receipt Date: 20181213
  Transmission Date: 20190205
  Serious: Yes (Other)
  Sender: FDA-Public Use
  Company Number: US-UCBSA-2018048571

PATIENT
  Age: 38 Year
  Sex: Male
  Weight: 90 kg

DRUGS (6)
  1. LIDOCAINE HCL [Concomitant]
     Active Substance: LIDOCAINE HYDROCHLORIDE
     Indication: ANAESTHESIA
     Dosage: UNK
     Dates: start: 20180928, end: 20180928
  2. FYCOMPA [Suspect]
     Active Substance: PERAMPANEL
     Indication: EPILEPSY
     Dosage: 8 MG, ONCE DAILY (QD)
     Route: 048
     Dates: start: 2017, end: 20180925
  3. BRIVARACETAM [Suspect]
     Active Substance: BRIVARACETAM
     Indication: EPILEPSY
     Dosage: 50 MG, 2X/DAY (BID)
     Route: 048
  4. FELBATOL [Suspect]
     Active Substance: FELBAMATE
     Indication: EPILEPSY
     Dosage: 1800 MG, 2X/DAY (BID)
     Route: 048
     Dates: start: 2008, end: 20180816
  5. FELBATOL [Suspect]
     Active Substance: FELBAMATE
     Dosage: 1800 MG ONCE DAILY AND 1200 MG ONCE DAILY
     Route: 048
     Dates: start: 20180817, end: 20181023
  6. BACITRACIN ZINC. [Concomitant]
     Active Substance: BACITRACIN ZINC
     Indication: INFECTION PROPHYLAXIS
     Dosage: UNK
     Route: 061
     Dates: start: 20180928, end: 20180928

REACTIONS (6)
  - Skin laceration [Recovered/Resolved]
  - Anger [Recovered/Resolved]
  - Cellulitis [Recovered/Resolved]
  - Aggression [Recovered/Resolved]
  - Abnormal behaviour [Recovered/Resolved]
  - Hypertension [Unknown]

NARRATIVE: CASE EVENT DATE: 20180928
